FAERS Safety Report 9567404 (Version 1)
Quarter: 2013Q3

REPORT INFORMATION
  Report Type: Spontaneous
  Country: US (occurrence: US)
  Receive Date: 20130930
  Receipt Date: 20130930
  Transmission Date: 20140515
  Serious: No
  Sender: FDA-Public Use
  Company Number: US-AMGEN-USASP2012062697

PATIENT
  Age: 49 Year
  Sex: Female

DRUGS (3)
  1. ENBREL [Suspect]
     Indication: RHEUMATOID ARTHRITIS
     Dosage: 50 MG, QWK
     Dates: start: 20110201, end: 201202
  2. PLAQUENIL                          /00072602/ [Concomitant]
     Dosage: 200 UNK, UNK
     Dates: start: 201105
  3. METHOTREXATE [Concomitant]
     Dosage: UNK
     Dates: start: 201102

REACTIONS (7)
  - Bipolar disorder [Recovered/Resolved]
  - Vomiting [Not Recovered/Not Resolved]
  - Weight decreased [Recovered/Resolved]
  - Dehydration [Recovered/Resolved]
  - Appendicectomy [Recovered/Resolved]
  - White blood cell count increased [Recovered/Resolved]
  - Rheumatoid arthritis [Not Recovered/Not Resolved]
